FAERS Safety Report 7338623-2 (Version None)
Quarter: 2011Q1

REPORT INFORMATION
  Report Type: 
  Country: None (occurrence: None)
  Receive Date: 20110308
  Receipt Date: 20110302
  Transmission Date: 20110831
  Serious: Yes (Other)
  Sender: FDA-Public Use
  Company Number: JP-ABBOTT-11P-087-0704662-00

PATIENT
  Sex: Female

DRUGS (1)
  1. CLARITH TABLETS [Suspect]
     Indication: PRODUCT USED FOR UNKNOWN INDICATION
     Dates: start: 20110202

REACTIONS (7)
  - PRURITUS [None]
  - ANAPHYLACTOID REACTION [None]
  - ABDOMINAL PAIN UPPER [None]
  - DYSPNOEA [None]
  - ERYTHEMA [None]
  - STOMATITIS [None]
  - PAIN [None]
